FAERS Safety Report 10053862 (Version 3)
Quarter: 2014Q2

REPORT INFORMATION
  Report Type: Report from Study
  Country: CA (occurrence: CA)
  Receive Date: 20140402
  Receipt Date: 20140403
  Transmission Date: 20141212
  Serious: Yes (Hospitalization)
  Sender: FDA-Public Use
  Company Number: PHHY2013CA015361

PATIENT
  Age: 74 Year
  Sex: Female

DRUGS (1)
  1. ZOMETA [Suspect]
     Indication: BREAST CANCER
     Dosage: 4 MG, EVERY 4 WEEKS
     Route: 042
     Dates: start: 20110222, end: 201307

REACTIONS (5)
  - Pneumonia [Recovered/Resolved]
  - Contusion [Unknown]
  - Tumour marker increased [Unknown]
  - Influenza like illness [Unknown]
  - Bone pain [Unknown]
